FAERS Safety Report 20153300 (Version 1)
Quarter: 2021Q4

REPORT INFORMATION
  Report Type: Spontaneous
  Country: US (occurrence: US)
  Receive Date: 20211206
  Receipt Date: 20211206
  Transmission Date: 20220303
  Serious: No
  Sender: FDA-Public Use
  Company Number: US-PERRIGO-21US029850

PATIENT
  Age: 38 Year
  Sex: Female
  Weight: 63.946 kg

DRUGS (2)
  1. CIMETIDINE [Suspect]
     Active Substance: CIMETIDINE
     Indication: Chest pain
     Dosage: UNKNOWN, UNKNOWN
     Route: 048
     Dates: start: 20201230
  2. SIMETHICONE (DIMETHICONE) [Concomitant]
     Active Substance: DIMETHICONE
     Indication: Chest pain
     Dosage: UNK
     Route: 065
     Dates: start: 20201230

REACTIONS (1)
  - Drug ineffective for unapproved indication [Unknown]

NARRATIVE: CASE EVENT DATE: 20201230
